FAERS Safety Report 6984548 (Version 4)
Quarter: 2014Q2

REPORT INFORMATION
  Report Type: Report from Study
  Country: US (occurrence: US)
  Receive Date: 20090501
  Receipt Date: 20140626
  Transmission Date: 20141212
  Serious: Yes (Hospitalization, Other)
  Sender: FDA-Public Use
  Company Number: US-ALEXION-A200800234

PATIENT
  Sex: 0

DRUGS (4)
  1. SOLIRIS [Suspect]
     Indication: PAROXYSMAL NOCTURNAL HAEMOGLOBINURIA
     Dosage: 900 MG, Q2W
     Route: 042
     Dates: start: 20070905
  2. SYNTHROID [Concomitant]
     Indication: HYPOTHYROIDISM
     Dosage: UNK
     Route: 065
  3. CHEMOTHERAPEUTICS NOS [Concomitant]
     Indication: NEOPLASM MALIGNANT
     Dosage: Q3W FOR 12W, QW FOR 12W
     Route: 065
     Dates: start: 200712, end: 200806
  4. TAMOXIFEN [Concomitant]
     Indication: BREAST CANCER
     Dosage: UNK
     Route: 065

REACTIONS (13)
  - Post procedural haemorrhage [Recovered/Resolved]
  - Cholecystectomy [Unknown]
  - Breast reconstruction [Recovered/Resolved]
  - Haemoglobin decreased [Recovered/Resolved]
  - Lymphadenopathy [Recovered/Resolved]
  - Implant site swelling [Recovered/Resolved]
  - Poor venous access [Recovered/Resolved]
  - Central venous catheterisation [Unknown]
  - Dyspnoea [Unknown]
  - Chest pain [Unknown]
  - Anxiety [Unknown]
  - Depression [Unknown]
  - Deep vein thrombosis [Unknown]
